FAERS Safety Report 11071658 (Version 1)
Quarter: 2015Q2

REPORT INFORMATION
  Report Type: Spontaneous
  Country: US (occurrence: None)
  Receive Date: 20150427
  Receipt Date: 20150427
  Transmission Date: 20150821
  Serious: Yes (Life-Threatening)
  Sender: FDA-Public Use
  Company Number: None

PATIENT
  Age: 56 Year
  Sex: Female
  Weight: 70.76 kg

DRUGS (2)
  1. METHADONE [Concomitant]
     Active Substance: METHADONE HYDROCHLORIDE
     Indication: CONSTIPATION
  2. BISACODYL. [Suspect]
     Active Substance: BISACODYL
     Indication: CONSTIPATION
     Route: 048
     Dates: start: 20150423, end: 20150423

REACTIONS (7)
  - Impaired work ability [None]
  - Blood pressure increased [None]
  - Hyperhidrosis [None]
  - Abdominal pain upper [None]
  - Tinnitus [None]
  - Feeling abnormal [None]
  - Self-medication [None]

NARRATIVE: CASE EVENT DATE: 20150423
